FAERS Safety Report 16798160 (Version 1)
Quarter: 2019Q3

REPORT INFORMATION
  Report Type: Not Available
  Country: US (occurrence: US)
  Receive Date: 20190912
  Receipt Date: 20190912
  Transmission Date: 20191005
  Serious: No
  Sender: FDA-Public Use
  Company Number: US-NEUROCRINE BIOSCIENCES INC.-2019NBI02548

PATIENT
  Sex: Female

DRUGS (17)
  1. SERTRALINE [Concomitant]
     Active Substance: SERTRALINE HYDROCHLORIDE
  2. QUETIAPINE. [Concomitant]
     Active Substance: QUETIAPINE
  3. ROPINIROLE. [Concomitant]
     Active Substance: ROPINIROLE
  4. FELODIPINE. [Concomitant]
     Active Substance: FELODIPINE
  5. LAMOTRIGINE. [Concomitant]
     Active Substance: LAMOTRIGINE
  6. OMEPRAZOLE. [Concomitant]
     Active Substance: OMEPRAZOLE
  7. INGREZZA [Suspect]
     Active Substance: VALBENAZINE
     Indication: TARDIVE DYSKINESIA
     Route: 048
  8. TRAZODONE [Concomitant]
     Active Substance: TRAZODONE HYDROCHLORIDE
  9. GABAPENTIN. [Concomitant]
     Active Substance: GABAPENTIN
  10. LITHIUM. [Concomitant]
     Active Substance: LITHIUM
  11. LEVOTHYROXINE. [Concomitant]
     Active Substance: LEVOTHYROXINE
  12. LORATADINE. [Concomitant]
     Active Substance: LORATADINE
  13. LISINOPRIL. [Concomitant]
     Active Substance: LISINOPRIL
  14. ALPRAZOLAM. [Concomitant]
     Active Substance: ALPRAZOLAM
  15. LASIX [Concomitant]
     Active Substance: FUROSEMIDE
  16. OLANZAPINE. [Concomitant]
     Active Substance: OLANZAPINE
  17. ROSUVASTATIN. [Concomitant]
     Active Substance: ROSUVASTATIN

REACTIONS (3)
  - Confusional state [Unknown]
  - Balance disorder [Unknown]
  - Fall [Unknown]
